FAERS Safety Report 18510621 (Version 1)
Quarter: 2020Q4

REPORT INFORMATION
  Report Type: Spontaneous
  Country: US (occurrence: US)
  Receive Date: 20201116
  Receipt Date: 20201116
  Transmission Date: 20210114
  Serious: Yes (Death)
  Sender: FDA-Public Use
  Company Number: None

PATIENT
  Age: 98 Year
  Sex: Female

DRUGS (5)
  1. OCTREOTIDE. [Suspect]
     Active Substance: OCTREOTIDE
     Indication: CARCINOID TUMOUR
     Route: 058
     Dates: start: 20180224
  2. MEPROBAMATE. [Concomitant]
     Active Substance: MEPROBAMATE
  3. LATANOPROST. [Concomitant]
     Active Substance: LATANOPROST
  4. LISINOPRIL. [Concomitant]
     Active Substance: LISINOPRIL
  5. MEMANTINE HC [Concomitant]

REACTIONS (1)
  - Death [None]
